FAERS Safety Report 6396663-4 (Version None)
Quarter: 2009Q4

REPORT INFORMATION
  Report Type: 
  Country: None (occurrence: None)
  Receive Date: 20091012
  Receipt Date: 20090929
  Transmission Date: 20100525
  Serious: Yes (Other)
  Sender: FDA-Public Use
  Company Number: US-ELI_LILLY_AND_COMPANY-US200909007058

PATIENT
  Sex: Female

DRUGS (3)
  1. CYMBALTA [Suspect]
     Indication: NEURALGIA
     Dosage: 20 MG, UNK
     Dates: start: 20090501, end: 20090101
  2. CYMBALTA [Suspect]
     Dosage: 30 MG, UNK
     Dates: start: 20090101, end: 20090825
  3. CYMBALTA [Suspect]
     Dosage: 30 MG, QOD
     Dates: start: 20090826, end: 20090924

REACTIONS (8)
  - ABDOMINAL DISTENSION [None]
  - ABNORMAL DREAMS [None]
  - CONFUSIONAL STATE [None]
  - CONSTIPATION [None]
  - DRUG WITHDRAWAL SYNDROME [None]
  - FATIGUE [None]
  - OFF LABEL USE [None]
  - SURGERY [None]
